FAERS Safety Report 16757530 (Version 2)
Quarter: 2019Q3

REPORT INFORMATION
  Report Type: Spontaneous
  Country: FR (occurrence: FR)
  Receive Date: 20190830
  Receipt Date: 20190910
  Transmission Date: 20191005
  Serious: Yes (Other)
  Sender: FDA-Public Use
  Company Number: FR-SUN PHARMACEUTICAL INDUSTRIES LTD-2019RR-219263

PATIENT
  Age: 74 Year
  Sex: Female
  Weight: 133.9 kg

DRUGS (6)
  1. ABASAGLAR 100 UNITES/ML, SOLUTION INJECTABLE EN STYLO PREREMPLI [Interacting]
     Active Substance: INSULIN GLARGINE
     Indication: DIABETES MELLITUS
     Dosage: ()
     Route: 058
     Dates: start: 20190624
  2. HUMALOG [Interacting]
     Active Substance: INSULIN LISPRO
     Indication: DIABETES MELLITUS
     Dosage: 78 INTERNATIONAL UNIT, DAILY
     Route: 058
  3. AMOXICILLINE [Concomitant]
     Active Substance: AMOXICILLIN
     Indication: OSTEITIS
     Dosage: 6 GRAM, DAILY
     Route: 048
     Dates: start: 20190709, end: 20190723
  4. METFORMIN [Suspect]
     Active Substance: METFORMIN HYDROCHLORIDE
     Indication: DIABETES MELLITUS
     Dosage: 1700 MILLIGRAM, DAILY
     Route: 048
  5. VICTOZA [Interacting]
     Active Substance: LIRAGLUTIDE
     Indication: DIABETES MELLITUS
     Dosage: 1.8 MILLIGRAM, DAILY
     Route: 058
     Dates: start: 20190624
  6. OFLOXACIN. [Interacting]
     Active Substance: OFLOXACIN
     Indication: OSTEITIS
     Dosage: 200 MILLIGRAM, DAILY
     Route: 048
     Dates: start: 20190709, end: 20190723

REACTIONS (2)
  - Hypoglycaemia [Recovered/Resolved]
  - Drug interaction [Recovered/Resolved]

NARRATIVE: CASE EVENT DATE: 20190711
